FAERS Safety Report 7942645-8 (Version None)
Quarter: 2011Q4

REPORT INFORMATION
  Report Type: 
  Country: None (occurrence: None)
  Receive Date: 20111128
  Receipt Date: 20111122
  Transmission Date: 20120403
  Serious: Yes (Hospitalization, Other)
  Sender: FDA-Public Use
  Company Number: CA-PFIZER INC-2011262486

PATIENT
  Age: 35 Year
  Sex: Male
  Weight: 83.9 kg

DRUGS (2)
  1. VARENICLINE TARTRATE [Suspect]
     Dosage: UNK
  2. LITHIUM [Concomitant]
     Indication: BIPOLAR DISORDER
     Dosage: 1200 MG, 2X/DAY
     Dates: start: 20100101

REACTIONS (10)
  - PARANOIA [None]
  - MANIA [None]
  - NAUSEA [None]
  - BIPOLAR DISORDER [None]
  - VOMITING [None]
  - CRYING [None]
  - SUICIDAL IDEATION [None]
  - AGITATION [None]
  - HALLUCINATIONS, MIXED [None]
  - AGGRESSION [None]
